FAERS Safety Report 6500393-5 (Version None)
Quarter: 2009Q4

REPORT INFORMATION
  Report Type: 
  Country: None (occurrence: None)
  Receive Date: 20091216
  Receipt Date: 20091204
  Transmission Date: 20100525
  Serious: Yes (Other)
  Sender: FDA-Public Use
  Company Number: PHHY2009CZ53699

PATIENT
  Age: 62 Year
  Sex: Male

DRUGS (1)
  1. EXJADE [Suspect]
     Dosage: 10 MG/KG/DAY
     Dates: start: 20090302, end: 20090830

REACTIONS (1)
  - ACUTE MYELOID LEUKAEMIA [None]
